FAERS Safety Report 4979801-7 (Version None)
Quarter: 2006Q1

REPORT INFORMATION
  Report Type: 
  Country: None (occurrence: None)
  Receive Date: 20060227
  Receipt Date: 20051214
  Transmission Date: 20060701
  Serious: No
  Sender: FDA-Public Use
  Company Number: PHEH2005US13336

PATIENT
  Sex: Female

DRUGS (3)
  1. ENABLEX [Suspect]
     Indication: HYPERTONIC BLADDER
     Dosage: 7.5 MG, QD
     Dates: start: 20051115
  2. MACRODANTIN [Concomitant]
  3. LAMISIL [Concomitant]

REACTIONS (2)
  - POLLAKIURIA [None]
  - URETHRAL SPASM [None]
